FAERS Safety Report 9632557 (Version 3)
Quarter: 2013Q4

REPORT INFORMATION
  Report Type: Spontaneous
  Country: IT (occurrence: IT)
  Receive Date: 20131018
  Receipt Date: 20131115
  Transmission Date: 20140711
  Serious: Yes (Life-Threatening, Hospitalization)
  Sender: FDA-Public Use
  Company Number: IT-ABBVIE-13P-083-1159125-00

PATIENT
  Age: 55 Year
  Sex: Male

DRUGS (7)
  1. DEPAKIN [Suspect]
     Indication: DRUG ABUSE
     Route: 048
     Dates: start: 20130919, end: 20130919
  2. DEPAKIN [Suspect]
     Indication: MAJOR DEPRESSION
  3. ENTACT [Suspect]
     Indication: DRUG ABUSE
     Route: 048
     Dates: start: 20130919, end: 20130919
  4. ENTACT [Suspect]
     Indication: MAJOR DEPRESSION
  5. XANAX [Suspect]
     Indication: DRUG ABUSE
     Route: 048
     Dates: start: 20130919, end: 20130919
  6. CARDIOASPIRIN [Concomitant]
     Indication: PRODUCT USED FOR UNKNOWN INDICATION
  7. TORVAST [Concomitant]
     Indication: PRODUCT USED FOR UNKNOWN INDICATION

REACTIONS (2)
  - Sopor [Unknown]
  - Drug abuse [Unknown]
